FAERS Safety Report 4880814-4 (Version None)
Quarter: 2006Q1

REPORT INFORMATION
  Report Type: 
  Country: None (occurrence: None)
  Receive Date: 20060110
  Receipt Date: 20050801
  Transmission Date: 20060701
  Serious: Yes (Other)
  Sender: FDA-Public Use
  Company Number: HQWYE530926JUL05

PATIENT

DRUGS (2)
  1. ETHAMBUTOL HCL [Suspect]
     Indication: DISSEMINATED TUBERCULOSIS
     Dosage: 047
  2. RIFAMPICIN + PYRAZIAMIDE [Suspect]
     Indication: DISSEMINATED TUBERCULOSIS
     Dosage: 047

REACTIONS (5)
  - COORDINATION ABNORMAL [None]
  - HEADACHE [None]
  - NAUSEA [None]
  - NYSTAGMUS [None]
  - VOMITING [None]
